FAERS Safety Report 4492903-7 (Version None)
Quarter: 2004Q4

REPORT INFORMATION
  Report Type: 
  Country: None (occurrence: None)
  Receive Date: 20041102
  Receipt Date: 20041021
  Transmission Date: 20050328
  Serious: No
  Sender: FDA-Public Use
  Company Number: 2004-120838-NL

PATIENT
  Age: 24 Month
  Sex: Male

DRUGS (5)
  1. CHORIONIC GONADOTROPIN [Suspect]
     Dosage: 750 IU WEEKLY
  2. FUROSEMIDE [Concomitant]
  3. PHENOBARBITAL TAB [Concomitant]
  4. LISINOPRIL [Concomitant]
  5. TRIMETHOPRIM [Concomitant]

REACTIONS (1)
  - CONVULSION [None]
